FAERS Safety Report 8105356-4 (Version None)
Quarter: 2012Q1

REPORT INFORMATION
  Report Type: 
  Country: None (occurrence: None)
  Receive Date: 20120201
  Receipt Date: 20120125
  Transmission Date: 20120608
  Serious: No
  Sender: FDA-Public Use
  Company Number: PHEH2012US002152

PATIENT
  Sex: Female

DRUGS (3)
  1. GLEEVEC [Suspect]
  2. SPRYCEL [Suspect]
  3. TASIGNA [Suspect]
     Dosage: 200 MG, BID

REACTIONS (2)
  - RASH [None]
  - BURNING SENSATION [None]
